FAERS Safety Report 6273473-X (Version None)
Quarter: 2009Q3

REPORT INFORMATION
  Report Type: 
  Country: None (occurrence: None)
  Receive Date: 20090720
  Receipt Date: 20090716
  Transmission Date: 20100115
  Serious: Yes (Death, Hospitalization)
  Sender: FDA-Public Use
  Company Number: PHHY2009MX28535

PATIENT
  Age: 81 Year
  Sex: Male

DRUGS (1)
  1. LAMISIL [Suspect]
     Indication: ONYCHOMYCOSIS
     Dosage: 1 TABLET (250MG) PER DAY
     Route: 048
     Dates: start: 20060901, end: 20080701

REACTIONS (4)
  - COMA [None]
  - DIABETES MELLITUS [None]
  - PNEUMONIA [None]
  - RESPIRATORY ARREST [None]
